FAERS Safety Report 6509770-X (Version None)
Quarter: 2009Q4

REPORT INFORMATION
  Report Type: 
  Country: None (occurrence: None)
  Receive Date: 20091222
  Receipt Date: 20091214
  Transmission Date: 20100525
  Serious: Yes (Other)
  Sender: FDA-Public Use
  Company Number: FR-ASTRAZENECA-2009SE32538

PATIENT
  Sex: Male

DRUGS (4)
  1. CRESTOR [Suspect]
     Route: 048
  2. CRESTOR [Suspect]
     Route: 048
  3. COVERSYL [Concomitant]
  4. KARDEGIC [Concomitant]

REACTIONS (3)
  - ABDOMINAL PAIN [None]
  - BURNING SENSATION [None]
  - LIPASE INCREASED [None]
